FAERS Safety Report 10053521 (Version 2)
Quarter: 2014Q2

REPORT INFORMATION
  Report Type: Spontaneous
  Country: US (occurrence: US)
  Receive Date: 20140402
  Receipt Date: 20140418
  Transmission Date: 20141212
  Serious: No
  Sender: FDA-Public Use
  Company Number: US-PFIZER INC-2014089885

PATIENT
  Sex: Male

DRUGS (1)
  1. NIFEDIPINE [Suspect]
     Dosage: 60 MG, UNK
     Dates: end: 20140324

REACTIONS (5)
  - Oedema peripheral [Unknown]
  - Joint swelling [Unknown]
  - Peripheral swelling [Unknown]
  - Pain in extremity [Unknown]
  - Nerve compression [Unknown]
